FAERS Safety Report 6813810-8 (Version None)
Quarter: 2010Q3

REPORT INFORMATION
  Report Type: 
  Country: None (occurrence: None)
  Receive Date: 20100702
  Receipt Date: 20100629
  Transmission Date: 20110219
  Serious: Yes (Hospitalization)
  Sender: FDA-Public Use
  Company Number: FR-BIOGENIDEC-2009BI028588

PATIENT
  Age: 36 Year
  Sex: Female
  Weight: 65 kg

DRUGS (9)
  1. TYSABRI [Suspect]
     Indication: MULTIPLE SCLEROSIS
     Route: 042
     Dates: start: 20070401, end: 20090605
  2. DITROPAN [Concomitant]
     Route: 048
  3. XANAX [Concomitant]
  4. AMITRIPTYLINE HCL [Concomitant]
     Route: 048
  5. NOCTAMIDE [Concomitant]
     Route: 048
  6. SEROPLEX [Concomitant]
     Route: 048
  7. NEXIUM [Concomitant]
  8. IMOVANE [Concomitant]
  9. RIVOTRIL [Concomitant]

REACTIONS (4)
  - IMMUNE RECONSTITUTION SYNDROME [None]
  - MULTIPLE SCLEROSIS RELAPSE [None]
  - PROGRESSIVE MULTIFOCAL LEUKOENCEPHALOPATHY [None]
  - THROMBOPHLEBITIS [None]
